FAERS Safety Report 5127243-6 (Version None)
Quarter: 2007Q1

REPORT INFORMATION
  Report Type: 
  Country: None (occurrence: None)
  Receive Date: 20061010
  Receipt Date: 20060929
  Transmission Date: 20070707
  Serious: Yes (Hospitalization)
  Sender: FDA-Public Use
  Company Number: 2005BI017679

PATIENT
  Age: 45 Year
  Sex: Male
  Weight: 120 kg

DRUGS (1)
  1. AVONEX [Suspect]
     Indication: MULTIPLE SCLEROSIS
     Dosage: 30 UG; QW; IM
     Route: 030
     Dates: start: 20031001, end: 20050901

REACTIONS (17)
  - ALCOHOLISM [None]
  - ANXIETY [None]
  - ASPARTATE AMINOTRANSFERASE INCREASED [None]
  - BRAIN NATRIURETIC PEPTIDE INCREASED [None]
  - BUNDLE BRANCH BLOCK LEFT [None]
  - CARDIAC FAILURE ACUTE [None]
  - CARDIOMEGALY [None]
  - CARDIOMYOPATHY [None]
  - GAMMA-GLUTAMYLTRANSFERASE INCREASED [None]
  - HEPATOJUGULAR REFLUX [None]
  - INSOMNIA [None]
  - PRURIGO [None]
  - RASH ERYTHEMATOUS [None]
  - SINUS TACHYCARDIA [None]
  - SKIN LESION [None]
  - VENTRICULAR HYPOKINESIA [None]
  - WEIGHT INCREASED [None]
